FAERS Safety Report 10699471 (Version 2)
Quarter: 2015Q1

REPORT INFORMATION
  Report Type: Spontaneous
  Country: US (occurrence: US)
  Receive Date: 20150109
  Receipt Date: 20150206
  Transmission Date: 20150721
  Serious: Yes (Hospitalization)
  Sender: FDA-Public Use
  Company Number: US-UCBSA-2015000601

PATIENT
  Age: 41 Year
  Sex: Female
  Weight: 70.3 kg

DRUGS (3)
  1. FOLIC ACID. [Concomitant]
     Active Substance: FOLIC ACID
     Indication: PREGNANCY
     Dosage: UNK, ONCE DAILY (QD)
     Route: 048
     Dates: start: 201407
  2. KEPPRA XR [Suspect]
     Active Substance: LEVETIRACETAM
     Indication: SEIZURE
     Dosage: 500 MG, 2X/DAY (BID)
     Route: 048
     Dates: start: 201312
  3. PRENATAL VITAMINS [Concomitant]
     Active Substance: VITAMINS
     Indication: PREGNANCY
     Dosage: UNK, ONCE DAILY (QD)
     Route: 048
     Dates: start: 201407

REACTIONS (5)
  - Uterine contractions during pregnancy [Recovered/Resolved]
  - Breast feeding [Unknown]
  - Premature delivery [Unknown]
  - Inappropriate schedule of drug administration [Unknown]
  - Pregnancy [Unknown]

NARRATIVE: CASE EVENT DATE: 201312
